FAERS Safety Report 4839309-6 (Version None)
Quarter: 2005Q4

REPORT INFORMATION
  Report Type: 
  Country: None (occurrence: None)
  Receive Date: 20051129
  Receipt Date: 20041215
  Transmission Date: 20060501
  Serious: No
  Sender: FDA-Public Use
  Company Number: 2004/05253

PATIENT
  Age: 65 Year
  Sex: Female

DRUGS (4)
  1. BUPROPION HCL [Suspect]
     Indication: DEPRESSION
     Dosage: 100MG TWICE PER DAY
     Route: 048
     Dates: start: 20041103
  2. WELLBUTRIN [Suspect]
     Indication: DEPRESSION
     Dosage: 150MG PER DAY
     Route: 048
     Dates: start: 20040101, end: 20040101
  3. LEXAPRO [Concomitant]
  4. TYLENOL [Concomitant]
     Indication: HEADACHE
     Route: 065

REACTIONS (2)
  - DEPRESSION [None]
  - MEDICATION RESIDUE [None]
